FAERS Safety Report 4316232-7 (Version None)
Quarter: 2004Q1

REPORT INFORMATION
  Report Type: 
  Country: None (occurrence: None)
  Receive Date: 20040312
  Receipt Date: 20010918
  Transmission Date: 20041129
  Serious: Yes (Other)
  Sender: FDA-Public Use
  Company Number: US-ROCHE-268579

PATIENT
  Age: 32 Year
  Sex: Female
  Weight: 55.8 kg

DRUGS (4)
  1. ACCUTANE [Suspect]
     Indication: ACNE
     Route: 048
     Dates: start: 19951220, end: 19960115
  2. BCP [Concomitant]
     Route: 048
     Dates: start: 19890615
  3. CLARITIN [Concomitant]
     Route: 048
     Dates: start: 19950519
  4. RHINOCORT [Concomitant]
     Route: 045
     Dates: start: 19960418

REACTIONS (7)
  - CONJUNCTIVITIS ALLERGIC [None]
  - DEPRESSION [None]
  - KERATOCONJUNCTIVITIS SICCA [None]
  - OVERDOSE [None]
  - PSYCHOTIC DISORDER [None]
  - SUICIDAL IDEATION [None]
  - SUICIDE ATTEMPT [None]
